FAERS Safety Report 26073918 (Version 1)
Quarter: 2025Q4

REPORT INFORMATION
  Report Type: Spontaneous
  Country: CA (occurrence: CA)
  Receive Date: 20251121
  Receipt Date: 20251121
  Transmission Date: 20260117
  Serious: Yes (Life-Threatening, Other)
  Sender: APOTEX
  Company Number: CA-PGRTD-001155585

PATIENT
  Age: 2 Year
  Sex: Male
  Weight: 14.3 kg

DRUGS (3)
  1. BUSULFAN [Suspect]
     Active Substance: BUSULFAN
     Indication: Bone marrow conditioning regimen
     Dosage: 84 MILLIGRAM
  2. ALEMTUZUMAB [Suspect]
     Active Substance: ALEMTUZUMAB
     Indication: Bone marrow conditioning regimen
     Dosage: 2.4 MILLIGRAM
  3. FLUDARABINE [Suspect]
     Active Substance: FLUDARABINE PHOSPHATE
     Indication: Bone marrow conditioning regimen
     Dosage: 26 MILLIGRAM

REACTIONS (3)
  - Aplastic anaemia [Recovered/Resolved]
  - Transfusion [Recovered/Resolved]
  - Mucosal inflammation [Recovered/Resolved]
